FAERS Safety Report 9082429 (Version 2)
Quarter: 2013Q2

REPORT INFORMATION
  Report Type: Spontaneous
  Country: US (occurrence: US)
  Receive Date: 20130218
  Receipt Date: 20130506
  Transmission Date: 20140414
  Serious: No
  Sender: FDA-Public Use
  Company Number: US-PFIZER INC-2013059722

PATIENT
  Age: 66 Year
  Sex: Female
  Weight: 77.1 kg

DRUGS (1)
  1. SUTENT [Suspect]
     Indication: THYROID CANCER
     Dosage: 50 MG, 1X/DAY
     Route: 048
     Dates: start: 20121112, end: 20130125

REACTIONS (10)
  - Off label use [Unknown]
  - Disease progression [Unknown]
  - Thyroid cancer [Unknown]
  - Ageusia [Unknown]
  - Malaise [Unknown]
  - Fatigue [Unknown]
  - Platelet count decreased [Unknown]
  - Tonsillitis [Unknown]
  - Stomatitis [Unknown]
  - Pain in extremity [Unknown]
